FAERS Safety Report 25302058 (Version 3)
Quarter: 2025Q3

REPORT INFORMATION
  Report Type: Report from Study
  Country: US (occurrence: US)
  Receive Date: 20250512
  Receipt Date: 20250902
  Transmission Date: 20251021
  Serious: Yes (Hospitalization, Other)
  Sender: ABBVIE
  Company Number: US-ABBVIE-6269688

PATIENT
  Age: 61 Year
  Sex: Female

DRUGS (1)
  1. HUMIRA [Suspect]
     Active Substance: ADALIMUMAB
     Indication: Psoriatic arthropathy
     Route: 058
     Dates: start: 20210201

REACTIONS (10)
  - Migraine [Recovering/Resolving]
  - Rash macular [Not Recovered/Not Resolved]
  - Osteoarthritis [Recovering/Resolving]
  - Spinal fusion surgery [Recovered/Resolved]
  - Skin swelling [Not Recovered/Not Resolved]
  - Osteoarthritis [Not Recovered/Not Resolved]
  - Psoriasis [Not Recovered/Not Resolved]
  - Insomnia [Not Recovered/Not Resolved]
  - Amnesia [Unknown]
  - Stress [Recovering/Resolving]

NARRATIVE: CASE EVENT DATE: 20210101
